FAERS Safety Report 12369013 (Version 2)
Quarter: 2016Q2

REPORT INFORMATION
  Report Type: Spontaneous
  Country: FR (occurrence: FR)
  Receive Date: 20160513
  Receipt Date: 20160519
  Transmission Date: 20160815
  Serious: Yes (Hospitalization)
  Sender: FDA-Public Use
  Company Number: FR-ACCORD-040547

PATIENT
  Age: 54 Year
  Sex: Female

DRUGS (16)
  1. XEROQUEL [Concomitant]
     Active Substance: QUETIAPINE FUMARATE
     Dates: start: 20160301
  2. TERALITHE [Concomitant]
     Active Substance: LITHIUM CARBONATE
  3. SMECTA [Concomitant]
     Active Substance: MONTMORILLONITE
  4. CERIS [Concomitant]
     Active Substance: TROSPIUM CHLORIDE
  5. ATARAX [Concomitant]
     Active Substance: HYDROXYZINE\HYDROXYZINE HYDROCHLORIDE
  6. LEVOTHYROX [Concomitant]
     Active Substance: LEVOTHYROXINE
  7. VENTOLINE [Concomitant]
     Active Substance: ALBUTEROL
  8. XANAX [Concomitant]
     Active Substance: ALPRAZOLAM
  9. AVILOCARDYL [Concomitant]
  10. XARELTO [Concomitant]
     Active Substance: RIVAROXABAN
  11. NASONEX [Concomitant]
     Active Substance: MOMETASONE FUROATE
  12. TOPIRAMATE INTAS [Suspect]
     Active Substance: TOPIRAMATE
     Indication: OBSESSIVE-COMPULSIVE DISORDER
     Dosage: STRENGTH: 25 MG?INITIALLY RECEIVED 25 MG FROM 17-FEB-2016 TO 01-MAR-2016.
     Route: 048
     Dates: start: 20160309, end: 20160315
  13. TOPIRAMATE EG [Suspect]
     Active Substance: TOPIRAMATE
     Indication: OBSESSIVE-COMPULSIVE DISORDER
     Dosage: STRENGTH: 50 MG
     Route: 048
     Dates: start: 20160302, end: 20160308
  14. LAMICTAL [Concomitant]
     Active Substance: LAMOTRIGINE
  15. INEXIUM [Concomitant]
     Active Substance: ESOMEPRAZOLE
  16. IBUPROFEN. [Concomitant]
     Active Substance: IBUPROFEN

REACTIONS (5)
  - Suspiciousness [Recovering/Resolving]
  - Suicidal ideation [Recovering/Resolving]
  - Mood altered [Recovering/Resolving]
  - Delusion [Recovering/Resolving]
  - Off label use [Unknown]

NARRATIVE: CASE EVENT DATE: 201603
